FAERS Safety Report 25518626 (Version 3)
Quarter: 2025Q4

REPORT INFORMATION
  Report Type: Report from Study
  Country: US (occurrence: US)
  Receive Date: 20250704
  Receipt Date: 20251210
  Transmission Date: 20260117
  Serious: Yes (Hospitalization, Other)
  Sender: ACADIA PHARMACEUTICALS
  Company Number: US-ACADIA PHARMACEUTICALS INC.-ACA-2025-TRF-007799

PATIENT
  Sex: Male

DRUGS (1)
  1. DAYBUE [Suspect]
     Active Substance: TROFINETIDE
     Indication: Rett syndrome
     Dosage: UNK
     Route: 065

REACTIONS (12)
  - Blood creatine phosphokinase increased [Unknown]
  - Hiatus hernia [Unknown]
  - Intentional self-injury [Unknown]
  - Flatulence [Unknown]
  - Gastrooesophageal reflux disease [Unknown]
  - Constipation [Unknown]
  - Hyperventilation [Unknown]
  - Asthma [Unknown]
  - Eye swelling [Unknown]
  - Swelling face [Unknown]
  - Haematoma [Unknown]
  - Eye contusion [Unknown]
